FAERS Safety Report 11745341 (Version 2)
Quarter: 2015Q4

REPORT INFORMATION
  Report Type: Spontaneous
  Country: JP (occurrence: JP)
  Receive Date: 20151117
  Receipt Date: 20151203
  Transmission Date: 20160304
  Serious: Yes (Death)
  Sender: FDA-Public Use
  Company Number: JP-009507513-1511JPN007935

PATIENT
  Age: 59 Year
  Sex: Female
  Weight: 50 kg

DRUGS (12)
  1. VANIHEP CAPSULES 150MG [Suspect]
     Active Substance: VANIPREVIR
     Indication: CHRONIC HEPATITIS C
     Dosage: DIVIDED IN 2 DOSES IN THE MORNING AND EVENING
     Route: 048
     Dates: start: 20150218, end: 2015
  2. SUGLAT [Concomitant]
     Active Substance: IPRAGLIFLOZIN L-PROLINE
     Indication: TYPE 2 DIABETES MELLITUS
     Dosage: DIVIDED DOSE FREQUENCY UNKNOWN
     Route: 048
     Dates: start: 20150918, end: 20151013
  3. REBETOL [Suspect]
     Active Substance: RIBAVIRIN
     Dosage: 1 TABLET IN THE MORNING
     Route: 048
     Dates: start: 20150603, end: 20150617
  4. TENELIA [Concomitant]
     Active Substance: CITALOPRAM HYDROBROMIDE
     Indication: TYPE 2 DIABETES MELLITUS
     Dosage: DIVIDED DOSE FREQUENCY UNKNOWN
     Route: 048
     Dates: start: 20150904, end: 20151013
  5. PEGINTRON [Suspect]
     Active Substance: PEGINTERFERON ALFA-2B
     Indication: CHRONIC HEPATITIS C
     Dosage: 80 MICROGRAM, ONCE A WEEK
     Route: 058
     Dates: start: 20150218, end: 20151020
  6. AZILVA [Concomitant]
     Active Substance: AZILSARTAN KAMEDOXOMIL
     Indication: HYPERTENSION
     Dosage: 40 MG, QD
     Route: 048
     Dates: start: 20141210, end: 20150705
  7. AZILVA [Concomitant]
     Active Substance: AZILSARTAN KAMEDOXOMIL
     Dosage: DIVIDED DOSE FREQUENCY UNKNOWN
     Route: 048
     Dates: start: 20150706, end: 20151013
  8. ACTOS [Concomitant]
     Active Substance: PIOGLITAZONE HYDROCHLORIDE
     Dosage: DIVIDED DOSE FREQUENCY UNKNOWN
     Route: 048
     Dates: start: 20150904, end: 20150918
  9. REBETOL [Suspect]
     Active Substance: RIBAVIRIN
     Indication: CHRONIC HEPATITIS C
     Dosage: DIVIDED DOSE FREQUENCY UNKNOWN
     Route: 048
     Dates: start: 20150218, end: 20150301
  10. GLACTIV [Concomitant]
     Active Substance: SITAGLIPTIN
     Dosage: DAILY DOSAGE UNKNOWN
     Route: 048
     Dates: end: 20150903
  11. REBETOL [Suspect]
     Active Substance: RIBAVIRIN
     Dosage: 2 TABLETS DIVIDED IN 2 DOSES IN THE MORNING AND EVENING
     Route: 048
     Dates: start: 20150302, end: 20150602
  12. REBETOL [Suspect]
     Active Substance: RIBAVIRIN
     Dosage: 200 MG IN 2 DAYS, DIVIDED DOSE FREQUENCY UNKNOWN
     Route: 048
     Dates: start: 20150618, end: 20151020

REACTIONS (12)
  - Red blood cell count decreased [Unknown]
  - Asthenia [Unknown]
  - Subarachnoid haemorrhage [Fatal]
  - Insomnia [Unknown]
  - Dizziness [Recovered/Resolved]
  - Haemoglobin decreased [Unknown]
  - Blood pressure increased [Recovering/Resolving]
  - Nausea [Unknown]
  - Headache [Unknown]
  - Diabetes mellitus [Unknown]
  - Decreased appetite [Unknown]
  - Platelet count decreased [Unknown]

NARRATIVE: CASE EVENT DATE: 2015
